FAERS Safety Report 26016241 (Version 1)
Quarter: 2025Q4

REPORT INFORMATION
  Report Type: Spontaneous
  Country: US (occurrence: US)
  Receive Date: 20251110
  Receipt Date: 20251110
  Transmission Date: 20260118
  Serious: No
  Sender: ALEXION PHARMACEUTICALS
  Company Number: US-AstraZeneca-CH-00984478A

PATIENT
  Sex: Female

DRUGS (2)
  1. SYMLIN [Suspect]
     Active Substance: PRAMLINTIDE ACETATE
     Dosage: 120 MICROGRAM, TID
     Route: 065
  2. SYMLIN [Suspect]
     Active Substance: PRAMLINTIDE ACETATE
     Dosage: 60 MICROGRAM, TID
     Route: 065

REACTIONS (7)
  - Product dose omission issue [Unknown]
  - Diarrhoea [Unknown]
  - Adverse reaction [Unknown]
  - Dyspepsia [Unknown]
  - Insulin therapy [Unknown]
  - Weight decreased [Unknown]
  - Socioeconomic precarity [Unknown]
